FAERS Safety Report 15746571 (Version 2)
Quarter: 2018Q4

REPORT INFORMATION
  Report Type: Spontaneous
  Country: JP (occurrence: JP)
  Receive Date: 20181220
  Receipt Date: 20181226
  Transmission Date: 20190205
  Serious: Yes (Hospitalization, Other)
  Sender: FDA-Public Use
  Company Number: JP-LUNDBECK-DKLU2055485

PATIENT
  Age: 4 Year
  Sex: Male

DRUGS (11)
  1. SABRIL [Suspect]
     Active Substance: VIGABATRIN
     Route: 048
     Dates: start: 20180423, end: 20180520
  2. LAMOTRIGINE. [Concomitant]
     Active Substance: LAMOTRIGINE
     Indication: INFANTILE SPASMS
     Route: 065
  3. LEVETIRACETAM. [Concomitant]
     Active Substance: LEVETIRACETAM
     Indication: INFANTILE SPASMS
     Route: 065
  4. SABRIL [Suspect]
     Active Substance: VIGABATRIN
     Dosage: 2 MONTHS 4 DAYS
     Route: 048
     Dates: start: 20180219, end: 20180422
  5. SABRIL [Suspect]
     Active Substance: VIGABATRIN
     Indication: INFANTILE SPASMS
     Route: 048
     Dates: start: 20171130, end: 20171210
  6. VALPROATE SODIUM. [Concomitant]
     Active Substance: VALPROATE SODIUM
     Indication: INFANTILE SPASMS
     Route: 065
     Dates: end: 20180218
  7. SABRIL [Suspect]
     Active Substance: VIGABATRIN
     Route: 048
     Dates: start: 20180618, end: 20180708
  8. SABRIL [Suspect]
     Active Substance: VIGABATRIN
     Dosage: 1 MONTH 4 DAYS
     Route: 048
     Dates: start: 20171211, end: 20180114
  9. SABRIL [Suspect]
     Active Substance: VIGABATRIN
     Dosage: 1 MONTH 4 DAYS
     Route: 048
     Dates: start: 20180115, end: 20180218
  10. SABRIL [Suspect]
     Active Substance: VIGABATRIN
     Route: 048
     Dates: start: 20180521, end: 20180617
  11. SABRIL [Suspect]
     Active Substance: VIGABATRIN
     Dosage: 1 MONTH 1 DAY
     Route: 048
     Dates: start: 20180709, end: 20180809

REACTIONS (3)
  - Somnolence [Recovered/Resolved]
  - Pneumonia [Recovered/Resolved]
  - Drug ineffective [Unknown]

NARRATIVE: CASE EVENT DATE: 20180115
